FAERS Safety Report 14838256 (Version 1)
Quarter: 2018Q2

REPORT INFORMATION
  Report Type: Spontaneous
  Country: US (occurrence: US)
  Receive Date: 20180417
  Receipt Date: 20180417
  Transmission Date: 20180711
  Serious: Yes (Disabling, Other)
  Sender: FDA-Public Use
  Company Number: None

PATIENT
  Sex: Female
  Weight: 70.76 kg

DRUGS (6)
  1. LYSINE [Concomitant]
     Active Substance: LYSINE
  2. OTC ALLERGY MEDICATION [Concomitant]
  3. LEVOTHYROXIN [Concomitant]
     Active Substance: LEVOTHYROXINE
  4. NEXPLANON [Suspect]
     Active Substance: ETONOGESTREL
     Indication: CONTRACEPTION
     Dates: start: 20150430, end: 20170228
  5. VITAMIN B12 [Concomitant]
     Active Substance: CYANOCOBALAMIN
  6. VITAMIN D3 [Concomitant]
     Active Substance: CHOLECALCIFEROL

REACTIONS (8)
  - Implant site pain [None]
  - Nerve injury [None]
  - Scar [None]
  - Complication of drug implant insertion [None]
  - Anxiety [None]
  - Weight increased [None]
  - Headache [None]
  - Embedded device [None]
